FAERS Safety Report 6739703-2 (Version None)
Quarter: 2010Q2

REPORT INFORMATION
  Report Type: 
  Country: None (occurrence: None)
  Receive Date: 20100525
  Receipt Date: 20100520
  Transmission Date: 20101027
  Serious: Yes (Hospitalization)
  Sender: FDA-Public Use
  Company Number: GB-ROCHE-702511

PATIENT
  Sex: Male
  Weight: 104.9 kg

DRUGS (7)
  1. TOCILIZUMAB [Suspect]
     Indication: RHEUMATOID ARTHRITIS
     Dosage: LAST DOSE PRIOR TO SAE; 26 FEBRUARY 2010, FORM: IV FLUID
     Route: 042
     Dates: start: 20090522, end: 20100226
  2. TOCILIZUMAB [Suspect]
     Route: 042
     Dates: start: 20100521
  3. METHOTREXATE [Concomitant]
     Dates: end: 20060101
  4. FOLIC ACID [Concomitant]
     Dates: end: 20060101
  5. SULFASALAZINE [Concomitant]
     Dates: end: 20090110
  6. ACETAMINOPHEN AND CODEINE PHOSPHATE [Concomitant]
     Dosage: FREQUENCY REPORTED AS PRN
  7. HUMIRA [Concomitant]
     Dates: end: 20100424

REACTIONS (1)
  - OSTEONECROSIS [None]
